FAERS Safety Report 10040139 (Version 2)
Quarter: 2014Q1

REPORT INFORMATION
  Report Type: Spontaneous
  Country: US (occurrence: US)
  Receive Date: 20140326
  Receipt Date: 20140326
  Transmission Date: 20141002
  Serious: Yes (Other)
  Sender: FDA-Public Use
  Company Number: US-GE HEALTHCARE MEDICAL DIAGNOSTICS-OSCN-PR-1008S-0215

PATIENT
  Sex: Male

DRUGS (4)
  1. OMNISCAN [Suspect]
     Indication: ABDOMINAL ABSCESS
     Route: 042
     Dates: start: 20060112, end: 20060112
  2. OPTIMARK [Suspect]
     Indication: TRANSPLANT EVALUATION
     Route: 042
     Dates: start: 20060525, end: 20060525
  3. MAGNEVIST [Suspect]
     Indication: PANCREATITIS
     Route: 042
     Dates: start: 20060206, end: 20060206
  4. MULTIHANCE [Suspect]
     Indication: SUBCLAVIAN ARTERY ANEURYSM
     Route: 042
     Dates: start: 20071030, end: 20071030

REACTIONS (1)
  - Nephrogenic systemic fibrosis [Not Recovered/Not Resolved]
